FAERS Safety Report 6634816-8 (Version None)
Quarter: 2010Q1

REPORT INFORMATION
  Report Type: 
  Country: None (occurrence: None)
  Receive Date: 20100315
  Receipt Date: 20100303
  Transmission Date: 20100710
  Serious: Yes (Other)
  Sender: FDA-Public Use
  Company Number: JP-PFIZER INC-2010027471

PATIENT
  Age: 51 Year
  Sex: Female

DRUGS (6)
  1. SOLANAX [Suspect]
     Dosage: 1.6 MG, AS NEEDED
     Route: 048
     Dates: start: 20100113
  2. DEPAKENE [Concomitant]
     Dosage: UNK
     Route: 048
  3. LUDIOMIL [Concomitant]
     Dosage: UNK
     Route: 048
     Dates: start: 20091226
  4. RHYTHMY [Concomitant]
     Dosage: UNK
     Route: 048
     Dates: start: 20100220
  5. LENDORMIN [Concomitant]
     Dosage: UNK
     Route: 048
  6. EURODIN [Concomitant]
     Route: 048
     Dates: end: 20100220

REACTIONS (3)
  - EYELID OEDEMA [None]
  - INCREASED APPETITE [None]
  - WEIGHT INCREASED [None]
